FAERS Safety Report 24338369 (Version 1)
Quarter: 2024Q3

REPORT INFORMATION
  Report Type: Spontaneous
  Country: US (occurrence: US)
  Receive Date: 20240919
  Receipt Date: 20240919
  Transmission Date: 20241016
  Serious: No
  Sender: SANOFI AVENTIS
  Company Number: US-SA-2024SA266911

PATIENT
  Age: 15 Year
  Sex: Female
  Weight: 66.05 kg

DRUGS (9)
  1. DUPIXENT [Suspect]
     Active Substance: DUPILUMAB
     Indication: Eosinophilic oesophagitis
     Dosage: 300MG ONCE A WEEK
     Route: 058
     Dates: start: 20240620
  2. CARAFATE [Concomitant]
     Active Substance: SUCRALFATE
     Route: 048
  3. PEPCID AC [Concomitant]
     Active Substance: FAMOTIDINE
     Route: 048
  4. AUVI-Q [Concomitant]
     Active Substance: EPINEPHRINE
  5. NEXPLANON [Concomitant]
     Active Substance: ETONOGESTREL
  6. MELATONIN [Concomitant]
     Active Substance: MELATONIN
     Route: 048
  7. ALBUTEROL SULFATE [Concomitant]
     Active Substance: ALBUTEROL SULFATE
  8. SINGULAIR [Concomitant]
     Active Substance: MONTELUKAST SODIUM
     Route: 048
  9. SYMBICORT [Concomitant]
     Active Substance: BUDESONIDE\FORMOTEROL FUMARATE DIHYDRATE

REACTIONS (2)
  - Vomiting [Not Recovered/Not Resolved]
  - Injection site urticaria [Not Recovered/Not Resolved]

NARRATIVE: CASE EVENT DATE: 20240101
